FAERS Safety Report 4366079-0 (Version None)
Quarter: 2004Q2

REPORT INFORMATION
  Report Type: 
  Country: None (occurrence: None)
  Receive Date: 20040524
  Receipt Date: 20040518
  Transmission Date: 20050107
  Serious: Yes (Other)
  Sender: FDA-Public Use
  Company Number: 2004-03-1364

PATIENT

DRUGS (1)
  1. PEG-INTERFERON ALFA-2B INJECTABLE POWDER [Suspect]
     Dosage: SUBCUTANEOUS
     Route: 058

REACTIONS (2)
  - HAEMORRHAGE [None]
  - THROMBOCYTOPENIA [None]
